FAERS Safety Report 25572371 (Version 1)
Quarter: 2025Q3

REPORT INFORMATION
  Report Type: Spontaneous
  Country: JP (occurrence: None)
  Receive Date: 20250717
  Receipt Date: 20250717
  Transmission Date: 20251021
  Serious: Yes (Hospitalization)
  Sender: FDA-CTU
  Company Number: None

PATIENT
  Sex: Male

DRUGS (4)
  1. BCG LIVE [Suspect]
     Active Substance: BCG LIVE
  2. TAMSULOSIN HYDROCHLORIDE [Suspect]
     Active Substance: TAMSULOSIN HYDROCHLORIDE
  3. MIRABEGRON [Concomitant]
     Active Substance: MIRABEGRON
  4. MIROGABALIN BESYLATE [Concomitant]
     Active Substance: MIROGABALIN BESYLATE

REACTIONS (2)
  - Prostatitis [None]
  - Prostate cancer [None]

NARRATIVE: CASE EVENT DATE: 20230904
